FAERS Safety Report 12830603 (Version 1)
Quarter: 2016Q4

REPORT INFORMATION
  Report Type: Spontaneous
  Country: US (occurrence: US)
  Receive Date: 20161007
  Receipt Date: 20161007
  Transmission Date: 20170207
  Serious: No
  Sender: FDA-Public Use
  Company Number: US-SANOFI-AVENTIS-2013SA023822

PATIENT
  Age: 45 Year
  Sex: Female
  Weight: 99.79 kg

DRUGS (13)
  1. AUBAGIO [Suspect]
     Active Substance: TERIFLUNOMIDE
     Indication: MULTIPLE SCLEROSIS
     Route: 048
     Dates: start: 20130226
  2. BACLOFEN. [Concomitant]
     Active Substance: BACLOFEN
  3. FIORICET [Concomitant]
     Active Substance: ACETAMINOPHEN\BUTALBITAL\CAFFEINE
  4. ZOLOFT [Concomitant]
     Active Substance: SERTRALINE HYDROCHLORIDE
     Dosage: 100 MG
  5. AUBAGIO [Suspect]
     Active Substance: TERIFLUNOMIDE
     Indication: MULTIPLE SCLEROSIS
     Route: 048
     Dates: start: 20130226
  6. AUBAGIO [Suspect]
     Active Substance: TERIFLUNOMIDE
     Indication: MULTIPLE SCLEROSIS
     Route: 048
     Dates: start: 20130814
  7. LISINOPRIL. [Concomitant]
     Active Substance: LISINOPRIL
     Indication: HYPERTENSION
     Dosage: FREQUENCY- EVERY MORNING, SECOND DOSE OF 5 MG IN THE EVENING IF NEEDED
  8. AMPYRA [Concomitant]
     Active Substance: DALFAMPRIDINE
  9. LEVOXYL [Concomitant]
     Active Substance: LEVOTHYROXINE SODIUM
  10. XANAX [Concomitant]
     Active Substance: ALPRAZOLAM
  11. LASIX [Concomitant]
     Active Substance: FUROSEMIDE
  12. PRILOSEC [Concomitant]
     Active Substance: OMEPRAZOLE MAGNESIUM
  13. TYLENOL PM [Concomitant]
     Active Substance: ACETAMINOPHEN\DIPHENHYDRAMINE

REACTIONS (5)
  - Abdominal pain upper [Recovered/Resolved]
  - Pain [Recovered/Resolved]
  - Abdominal discomfort [Recovered/Resolved]
  - Headache [Recovered/Resolved]
  - Nausea [Recovered/Resolved]

NARRATIVE: CASE EVENT DATE: 20130226
